FAERS Safety Report 6658091-3 (Version None)
Quarter: 2010Q1

REPORT INFORMATION
  Report Type: 
  Country: None (occurrence: None)
  Receive Date: 20100322
  Receipt Date: 20090306
  Transmission Date: 20100710
  Serious: Yes (Other)
  Sender: FDA-Public Use
  Company Number: 2009US-22441

PATIENT
  Age: 15 Year
  Sex: Male

DRUGS (6)
  1. ISOTRETINOIN [Suspect]
     Indication: ACNE
     Dosage: 40 MG, BID, ORAL : 40 MG, QD, ORAL
     Route: 048
     Dates: start: 20081105
  2. ISOTRETINOIN [Suspect]
     Indication: ACNE
     Dosage: 40 MG, BID, ORAL : 40 MG, QD, ORAL
     Route: 048
     Dates: start: 20081105
  3. CLARAVIS [Suspect]
     Indication: ACNE
     Dosage: 40 MG, BID, ORAL : 40 MG, QD, ORAL
     Route: 048
     Dates: start: 20081210, end: 20090211
  4. CLARAVIS [Suspect]
     Indication: ACNE
     Dosage: 40 MG, BID, ORAL : 40 MG, QD, ORAL
     Route: 048
     Dates: start: 20081210, end: 20090211
  5. PROZAC [Concomitant]
  6. LORATADINE [Concomitant]

REACTIONS (2)
  - DEPRESSION [None]
  - SUICIDAL IDEATION [None]
